FAERS Safety Report 4931432-0 (Version None)
Quarter: 2006Q1

REPORT INFORMATION
  Report Type: 
  Country: None (occurrence: None)
  Receive Date: 20060228
  Receipt Date: 20051110
  Transmission Date: 20060701
  Serious: Yes (Death, Hospitalization)
  Sender: FDA-Public Use
  Company Number: 2006020618

PATIENT
  Age: 84 Year
  Sex: Female
  Weight: 82.1011 kg

DRUGS (1)
  1. BEXTRA [Suspect]
     Indication: ARTHRITIS
     Dosage: 20 MG
     Dates: start: 20031101, end: 20031109

REACTIONS (15)
  - ANAEMIA [None]
  - ASTHENIA [None]
  - BLOOD SODIUM DECREASED [None]
  - CARDIAC FAILURE CONGESTIVE [None]
  - CEREBROVASCULAR ACCIDENT [None]
  - CONFUSIONAL STATE [None]
  - DEHYDRATION [None]
  - HYPERSENSITIVITY [None]
  - MEMORY IMPAIRMENT [None]
  - MOBILITY DECREASED [None]
  - RENAL FAILURE [None]
  - SEPSIS [None]
  - STAPHYLOCOCCAL INFECTION [None]
  - STEVENS-JOHNSON SYNDROME [None]
  - THROMBOSIS [None]
